FAERS Safety Report 5644737-5 (Version None)
Quarter: 2008Q1

REPORT INFORMATION
  Report Type: 
  Country: None (occurrence: None)
  Receive Date: 20080229
  Receipt Date: 20070706
  Transmission Date: 20080703
  Serious: No
  Sender: FDA-Public Use
  Company Number: A0662199A

PATIENT
  Age: 50 Year
  Sex: Male

DRUGS (2)
  1. VALTREX [Suspect]
     Indication: GENITAL HERPES
     Dosage: 1MG PER DAY
     Route: 048
     Dates: start: 20060701
  2. ALCOHOL [Concomitant]

REACTIONS (1)
  - ERECTILE DYSFUNCTION [None]
